FAERS Safety Report 6403345-9 (Version None)
Quarter: 2009Q4

REPORT INFORMATION
  Report Type: 
  Country: None (occurrence: None)
  Receive Date: 20091016
  Receipt Date: 20091002
  Transmission Date: 20100525
  Serious: Yes (Hospitalization)
  Sender: FDA-Public Use
  Company Number: JP-ROCHE-646304

PATIENT
  Sex: Male

DRUGS (13)
  1. PEG-INTERFERON ALFA 2A (RO 25-8310) [Suspect]
     Dosage: DOSE DECREASED.
     Route: 058
     Dates: start: 20080830, end: 20080906
  2. PEG-INTERFERON ALFA 2A (RO 25-8310) [Suspect]
     Route: 058
     Dates: start: 20080913, end: 20080913
  3. PEG-INTERFERON ALFA 2A (RO 25-8310) [Suspect]
     Route: 058
     Dates: start: 20080920, end: 20081011
  4. PEG-INTERFERON ALFA 2A (RO 25-8310) [Suspect]
     Route: 058
     Dates: start: 20081018, end: 20090302
  5. PEG-INTERFERON ALFA 2A (RO 25-8310) [Suspect]
     Route: 058
     Dates: start: 20090321, end: 20090321
  6. RIBAVIRIN [Suspect]
     Route: 048
     Dates: start: 20080830, end: 20081011
  7. RIBAVIRIN [Suspect]
     Route: 048
     Dates: start: 20081018, end: 20090207
  8. RIBAVIRIN [Suspect]
     Route: 048
     Dates: start: 20090214, end: 20090308
  9. RIBAVIRIN [Suspect]
     Route: 048
     Dates: start: 20090321, end: 20090327
  10. EXCEGRAN [Concomitant]
     Dosage: DOSE FORM: ORAL FORMULATION (NOT OTHERWISE SPECIFIED)
     Route: 048
  11. GABAPEN [Concomitant]
     Route: 048
  12. SILECE [Concomitant]
     Route: 048
  13. CONTOMIN [Concomitant]
     Route: 048

REACTIONS (12)
  - ALANINE AMINOTRANSFERASE INCREASED [None]
  - ASPARTATE AMINOTRANSFERASE INCREASED [None]
  - BACK PAIN [None]
  - BLOOD CREATININE INCREASED [None]
  - BLOOD LACTATE DEHYDROGENASE INCREASED [None]
  - DIABETES MELLITUS [None]
  - DIZZINESS [None]
  - EPILEPSY [None]
  - GAMMA-GLUTAMYLTRANSFERASE INCREASED [None]
  - HEADACHE [None]
  - NEUTROPHIL COUNT DECREASED [None]
  - PYREXIA [None]
